FAERS Safety Report 20173936 (Version 1)
Quarter: 2021Q4

REPORT INFORMATION
  Report Type: Report from Study
  Country: US (occurrence: US)
  Receive Date: 20211213
  Receipt Date: 20211213
  Transmission Date: 20220303
  Serious: No
  Sender: FDA-Public Use
  Company Number: US-ACADIA PHARMACEUTICALS INC.-ACA-2021-PIM-004073

PATIENT
  Sex: Male

DRUGS (7)
  1. NUPLAZID [Suspect]
     Active Substance: PIMAVANSERIN TARTRATE
     Indication: Parkinson^s disease psychosis
     Dosage: 34 MILLIGRAM, QD
     Route: 048
     Dates: end: 20211112
  2. NUPLAZID [Suspect]
     Active Substance: PIMAVANSERIN TARTRATE
     Indication: Hallucination
  3. NUPLAZID [Suspect]
     Active Substance: PIMAVANSERIN TARTRATE
     Indication: Delusion
  4. VITAMIN B12 [Concomitant]
     Active Substance: CYANOCOBALAMIN
     Dosage: SUB 5000 MCG
  5. MAGNESIUM GLYCINATE [Concomitant]
     Active Substance: MAGNESIUM GLYCINATE
  6. PROCRIT [Concomitant]
     Active Substance: ERYTHROPOIETIN
     Dosage: 10000/ML
  7. VITAMIN D3 [Concomitant]
     Active Substance: CHOLECALCIFEROL
     Dosage: 1000

REACTIONS (1)
  - Hallucination [Not Recovered/Not Resolved]
